FAERS Safety Report 8061800-2 (Version None)
Quarter: 2012Q1

REPORT INFORMATION
  Report Type: 
  Country: None (occurrence: None)
  Receive Date: 20120123
  Receipt Date: 20100811
  Transmission Date: 20120608
  Serious: Yes (Other)
  Sender: FDA-Public Use
  Company Number: US-BAYER-200934775NA

PATIENT
  Age: 50 Year
  Sex: Female
  Weight: 99.6 kg

DRUGS (12)
  1. MAGNEVIST [Suspect]
     Indication: ANGIOGRAM
  2. OMNISCAN [Suspect]
     Indication: NUCLEAR MAGNETIC RESONANCE IMAGING
     Dates: start: 20050125, end: 20050125
  3. OMNISCAN [Suspect]
     Indication: ANGIOGRAM
     Dates: start: 20040223, end: 20040223
  4. OMNISCAN [Suspect]
     Indication: FISTULOGRAM
     Dates: start: 20051122, end: 20051122
  5. OPTIMARK [Suspect]
     Indication: NUCLEAR MAGNETIC RESONANCE IMAGING
  6. MULTIHANCE [Suspect]
     Indication: ANGIOGRAM
  7. PROHANCE [Suspect]
     Indication: ANGIOGRAM
  8. MULTIHANCE [Suspect]
     Indication: NUCLEAR MAGNETIC RESONANCE IMAGING
  9. OPTIMARK [Suspect]
     Indication: ANGIOGRAM
  10. MAGNEVIST [Suspect]
     Indication: NUCLEAR MAGNETIC RESONANCE IMAGING
  11. OMNISCAN [Suspect]
     Dates: start: 20060613, end: 20060613
  12. PROHANCE [Suspect]
     Indication: NUCLEAR MAGNETIC RESONANCE IMAGING

REACTIONS (11)
  - NEPHROGENIC SYSTEMIC FIBROSIS [None]
  - PAIN [None]
  - SKIN FISSURES [None]
  - JOINT RANGE OF MOTION DECREASED [None]
  - OEDEMA PERIPHERAL [None]
  - SKIN TIGHTNESS [None]
  - MOBILITY DECREASED [None]
  - PAIN IN EXTREMITY [None]
  - DIPLEGIA [None]
  - SKIN INDURATION [None]
  - SKIN PLAQUE [None]
